FAERS Safety Report 5744732-1 (Version None)
Quarter: 2008Q2

REPORT INFORMATION
  Report Type: 
  Country: None (occurrence: None)
  Receive Date: 20080520
  Receipt Date: 20080508
  Transmission Date: 20081010
  Serious: Yes (Hospitalization)
  Sender: FDA-Public Use
  Company Number: US-PFIZER INC-2008019457

PATIENT
  Sex: Female
  Weight: 84.8 kg

DRUGS (12)
  1. LYRICA [Suspect]
     Indication: NEUROPATHY PERIPHERAL
  2. CYMBALTA [Concomitant]
  3. VALSARTAN [Concomitant]
  4. ACETYLSALICYLIC ACID SRT [Concomitant]
  5. LAMICTAL [Concomitant]
  6. LEVOTHYROXINE SODIUM [Concomitant]
  7. CLONIDINE [Concomitant]
  8. DEPAKOTE [Concomitant]
  9. ZOLPIDEM TARTRATE [Concomitant]
  10. PROPOXYPHENE HYDROCHLORIDE [Concomitant]
  11. IBUPROFEN [Concomitant]
  12. HYDROCHLOROTHIAZIDE [Concomitant]

REACTIONS (3)
  - BIPOLAR DISORDER [None]
  - DEPRESSION [None]
  - SUICIDAL IDEATION [None]
